FAERS Safety Report 23106831 (Version 3)
Quarter: 2024Q2

REPORT INFORMATION
  Report Type: Report from Study
  Country: US (occurrence: US)
  Receive Date: 20231026
  Receipt Date: 20240517
  Transmission Date: 20240715
  Serious: No
  Sender: FDA-Public Use
  Company Number: US-002147023-NVSC2023US226788

PATIENT
  Sex: Male

DRUGS (1)
  1. KESIMPTA [Suspect]
     Active Substance: OFATUMUMAB
     Indication: Multiple sclerosis
     Dosage: UNK
     Route: 065

REACTIONS (7)
  - Chills [Unknown]
  - Tremor [Unknown]
  - Feeling cold [Unknown]
  - Headache [Unknown]
  - Dizziness [Unknown]
  - Insomnia [Unknown]
  - Drug ineffective [Unknown]
